FAERS Safety Report 21626994 (Version 2)
Quarter: 2022Q4

REPORT INFORMATION
  Report Type: Spontaneous
  Country: US (occurrence: US)
  Receive Date: 20221122
  Receipt Date: 20221222
  Transmission Date: 20230113
  Serious: Yes (Hospitalization, Other)
  Sender: FDA-Public Use
  Company Number: US-009507513-2211USA005288

PATIENT
  Age: 83 Year
  Sex: Female

DRUGS (1)
  1. KEYTRUDA [Suspect]
     Active Substance: PEMBROLIZUMAB
     Indication: Transitional cell carcinoma
     Dosage: 200 MILLIGRAM, Q3W
     Dates: start: 202201, end: 20220915

REACTIONS (11)
  - Oral pain [Not Recovered/Not Resolved]
  - Oral discomfort [Not Recovered/Not Resolved]
  - Feeding disorder [Not Recovered/Not Resolved]
  - Fluid intake reduced [Not Recovered/Not Resolved]
  - Urinary tract infection [Unknown]
  - Hypoxia [Unknown]
  - Acute kidney injury [Unknown]
  - Dry mouth [Not Recovered/Not Resolved]
  - Asthenia [Unknown]
  - Rash [Recovered/Resolved]
  - Hospice care [Unknown]

NARRATIVE: CASE EVENT DATE: 20220101
